FAERS Safety Report 8488308-4 (Version None)
Quarter: 2012Q3

REPORT INFORMATION
  Report Type: 
  Country: None (occurrence: None)
  Receive Date: 20120705
  Receipt Date: 20120703
  Transmission Date: 20120928
  Serious: Yes (Other)
  Sender: FDA-Public Use
  Company Number: PHHY2012AU057025

PATIENT
  Sex: Female

DRUGS (2)
  1. CLOZARIL [Suspect]
     Indication: BIPOLAR DISORDER
     Dosage: 450 MG, UNK
     Dates: start: 20071107
  2. LITHIUM CARBONATE [Concomitant]
     Indication: BIPOLAR DISORDER

REACTIONS (4)
  - CONSTIPATION [None]
  - DIARRHOEA [None]
  - HYPOMANIA [None]
  - TOXICITY TO VARIOUS AGENTS [None]
